FAERS Safety Report 10195225 (Version 1)
Quarter: 2014Q2

REPORT INFORMATION
  Report Type: Spontaneous
  Country: PL (occurrence: PL)
  Receive Date: 20140526
  Receipt Date: 20140526
  Transmission Date: 20141212
  Serious: Yes (Hospitalization)
  Sender: FDA-Public Use
  Company Number: PL-UCBSA-121947

PATIENT
  Age: 22 Year
  Sex: Male

DRUGS (3)
  1. LEVETIRACETAM [Suspect]
     Indication: EPILEPSY
     Dates: start: 2013
  2. INSULIN LISPRO [Concomitant]
     Indication: TYPE 1 DIABETES MELLITUS
  3. VALPROIC ACID [Concomitant]
     Indication: EPILEPSY
     Dates: start: 2013

REACTIONS (2)
  - Convulsion [Unknown]
  - Loss of consciousness [Unknown]
